FAERS Safety Report 10076694 (Version 3)
Quarter: 2014Q2

REPORT INFORMATION
  Report Type: Spontaneous
  Country: US (occurrence: US)
  Receive Date: 20140414
  Receipt Date: 20140501
  Transmission Date: 20141212
  Serious: No
  Sender: FDA-Public Use
  Company Number: US-009507513-1404USA006708

PATIENT
  Age: 70 Year
  Sex: Female
  Weight: 49.89 kg

DRUGS (5)
  1. DULERA [Suspect]
     Indication: ASTHMA
     Dosage: TWO PUFFS ONCE DAILY
     Route: 055
     Dates: start: 20140407, end: 2014
  2. DULERA [Suspect]
     Dosage: TWO PUFFS ONCE DAILY
     Route: 055
     Dates: start: 2014
  3. ALLEGRA [Concomitant]
  4. NASACORT [Concomitant]
  5. SINGULAIR [Concomitant]

REACTIONS (5)
  - Nervousness [Recovered/Resolved]
  - Drug dose omission [Unknown]
  - Underdose [Unknown]
  - Inappropriate schedule of drug administration [Unknown]
  - Product quality issue [Unknown]
